FAERS Safety Report 4976695-0 (Version None)
Quarter: 2006Q2

REPORT INFORMATION
  Report Type: 
  Country: None (occurrence: None)
  Receive Date: 20060419
  Receipt Date: 20060106
  Transmission Date: 20061013
  Serious: Yes (Hospitalization)
  Sender: FDA-Public Use
  Company Number: US-MERCK-0601USA00982

PATIENT
  Age: 54 Year
  Sex: Female
  Weight: 90 kg

DRUGS (2)
  1. VIOXX [Suspect]
     Indication: RHEUMATOID ARTHRITIS
     Route: 048
     Dates: start: 19991012, end: 20040812
  2. VIOXX [Suspect]
     Indication: PAIN
     Route: 048
     Dates: start: 19991012, end: 20040812

REACTIONS (4)
  - EMBOLIC STROKE [None]
  - HYPERTENSION [None]
  - JOINT INJURY [None]
  - LIMB INJURY [None]
